FAERS Safety Report 6381179-1 (Version None)
Quarter: 2009Q3

REPORT INFORMATION
  Report Type: 
  Country: None (occurrence: None)
  Receive Date: 20090929
  Receipt Date: 20090706
  Transmission Date: 20100115
  Serious: No
  Sender: FDA-Public Use
  Company Number: US-TYCO HEALTHCARE/MALLINCKRODT-T200901340

PATIENT
  Age: 83 Year
  Sex: Female
  Weight: 52.154 kg

DRUGS (9)
  1. TECHNETIUM TC 99M SESTAMIBI [Suspect]
     Indication: CARDIAC STRESS TEST
     Dosage: UNK
     Route: 042
     Dates: start: 20090706, end: 20090706
  2. ULTRA-TECHNEKOW [Concomitant]
     Indication: CARDIAC STRESS TEST
     Dosage: UNK
     Route: 042
     Dates: start: 20090706, end: 20090706
  3. TECHNETIUM TC 99M GENERATOR [Concomitant]
     Indication: CARDIAC STRESS TEST
     Dosage: UNK
     Route: 042
     Dates: start: 20090706, end: 20090706
  4. GALANTAMINE HYDROBROMIDE [Concomitant]
     Dosage: 24 MG, QD
     Route: 048
  5. LEVOTHYROXINE SODIUM [Concomitant]
     Dosage: 50 UG, QD
     Route: 048
  6. ASPIRIN [Concomitant]
     Dosage: 81 MG, QD
     Route: 048
  7. PRILOSEC [Concomitant]
     Dosage: 20 MG, QD
     Route: 048
  8. STOOL SOFTENER [Concomitant]
     Dosage: UNK
     Route: 048
  9. MULTIVITAMIN                       /00831701/ [Concomitant]
     Dosage: UNK
     Route: 048

REACTIONS (1)
  - DRUG INEFFECTIVE [None]
